FAERS Safety Report 14401441 (Version 1)
Quarter: 2018Q1

REPORT INFORMATION
  Report Type: Spontaneous
  Country: US (occurrence: US)
  Receive Date: 20180115
  Receipt Date: 20180115
  Transmission Date: 20180509
  Serious: Yes (Hospitalization)
  Sender: FDA-Public Use
  Company Number: None

PATIENT
  Age: 65 Year
  Sex: Male

DRUGS (1)
  1. TAMSULOSIN [Suspect]
     Active Substance: TAMSULOSIN
     Indication: PRIAPISM
     Route: 048
     Dates: start: 20180112, end: 20180112

REACTIONS (2)
  - Priapism [None]
  - Drug ineffective [None]

NARRATIVE: CASE EVENT DATE: 20180112
